FAERS Safety Report 9694520 (Version 1)
Quarter: 2013Q4

REPORT INFORMATION
  Report Type: Spontaneous
  Country: AU (occurrence: AU)
  Receive Date: 20131118
  Receipt Date: 20131118
  Transmission Date: 20140711
  Serious: Yes (Other)
  Sender: FDA-Public Use
  Company Number: AU-ABBVIE-13P-008-1158137-00

PATIENT
  Age: 45 Year
  Sex: Female

DRUGS (4)
  1. EPILIM [Suspect]
     Indication: PRODUCT USED FOR UNKNOWN INDICATION
  2. CITALOPRAM HYDROCHLORIDE [Suspect]
     Indication: PRODUCT USED FOR UNKNOWN INDICATION
  3. LITHIUM CARBONATE [Suspect]
     Indication: PRODUCT USED FOR UNKNOWN INDICATION
  4. SEROQUEL [Suspect]
     Indication: PRODUCT USED FOR UNKNOWN INDICATION

REACTIONS (7)
  - Serotonin syndrome [Unknown]
  - Hyperhidrosis [Unknown]
  - Palpitations [Unknown]
  - Panic disorder [Unknown]
  - Coordination abnormal [Unknown]
  - Confusional state [Unknown]
  - Diarrhoea [Unknown]
